FAERS Safety Report 8458279-5 (Version None)
Quarter: 2012Q2

REPORT INFORMATION
  Report Type: 
  Country: None (occurrence: None)
  Receive Date: 20120323
  Receipt Date: 20111025
  Transmission Date: 20120825
  Serious: Yes (Hospitalization)
  Sender: FDA-Public Use
  Company Number: 163-21880-11102787

PATIENT
  Age: 88 Year
  Sex: Female

DRUGS (5)
  1. FESO4 (FERROUS SULFATE) [Concomitant]
  2. LEVOTHYROXINE SODIUM [Concomitant]
  3. REVLIMID [Suspect]
     Indication: MYELODYSPLASTIC SYNDROME
     Dosage: 10 MG, 1 IN 1 D, PO
     Route: 048
     Dates: start: 20111004, end: 20111025
  4. REVLIMID [Suspect]
  5. OMEPRAZOLE [Concomitant]

REACTIONS (2)
  - DISEASE PROGRESSION [None]
  - MYELODYSPLASTIC SYNDROME [None]
